FAERS Safety Report 21889797 (Version 4)
Quarter: 2023Q4

REPORT INFORMATION
  Report Type: Spontaneous
  Country: US (occurrence: US)
  Receive Date: 20230120
  Receipt Date: 20231218
  Transmission Date: 20240110
  Serious: No
  Sender: FDA-Public Use
  Company Number: US-PFIZER INC-PV202300010739

PATIENT
  Age: 75 Year
  Sex: Female
  Weight: 66.485 kg

DRUGS (5)
  1. IBRANCE [Suspect]
     Active Substance: PALBOCICLIB
     Indication: Breast cancer female
     Dosage: 75 MG, CYCLIC (DAILY FOR 21 DAYS THEN 1 WEEK OFF )
     Route: 048
     Dates: start: 20220329
  2. LETROZOLE [Concomitant]
     Active Substance: LETROZOLE
     Indication: Breast cancer female
     Dosage: UNK
     Dates: start: 202203
  3. ZOMETA [Concomitant]
     Active Substance: ZOLEDRONIC ACID
     Indication: Breast cancer female
     Dosage: UNK
  4. FEMARA [Concomitant]
     Active Substance: LETROZOLE
     Indication: Breast cancer female
     Dosage: UNK
  5. XGEVA [Concomitant]
     Active Substance: DENOSUMAB
     Indication: Breast cancer female

REACTIONS (13)
  - Neoplasm progression [Unknown]
  - Anaemia [Unknown]
  - Nausea [Unknown]
  - Weight decreased [Unknown]
  - Hypophagia [Unknown]
  - Decreased appetite [Unknown]
  - Alopecia [Unknown]
  - Carbohydrate antigen 27.29 increased [Unknown]
  - Dyspnoea [Unknown]
  - Heart rate increased [Unknown]
  - Pelvic pain [Recovering/Resolving]
  - Weight increased [Unknown]
  - Product dispensing error [Unknown]

NARRATIVE: CASE EVENT DATE: 20220331
